FAERS Safety Report 10627419 (Version 2)
Quarter: 2014Q4

REPORT INFORMATION
  Report Type: Spontaneous
  Country: JP (occurrence: JP)
  Receive Date: 20141205
  Receipt Date: 20141229
  Transmission Date: 20150529
  Serious: Yes (Death, Other)
  Sender: FDA-Public Use
  Company Number: JP-MYLANLABS-2014M1012938

PATIENT

DRUGS (3)
  1. CARBOPLATIN. [Suspect]
     Active Substance: CARBOPLATIN
     Indication: LUNG SQUAMOUS CELL CARCINOMA STAGE III
     Dosage: AREA UNDER THE CURVE OF 5 ON DAY 1
     Route: 065
  2. PACLITAXEL. [Suspect]
     Active Substance: PACLITAXEL
     Indication: LUNG SQUAMOUS CELL CARCINOMA STAGE III
     Dosage: 200MG/M2
     Route: 065
  3. HYDROCORTISONE. [Concomitant]
     Active Substance: HYDROCORTISONE
     Indication: HYPOPITUITARISM
     Dosage: 3.3MG/DAY
     Route: 065

REACTIONS (6)
  - Candida infection [Fatal]
  - Pancytopenia [Unknown]
  - Septic shock [Fatal]
  - Neutropenia [Unknown]
  - Colitis ischaemic [Not Recovered/Not Resolved]
  - Febrile neutropenia [Not Recovered/Not Resolved]
